FAERS Safety Report 7759016-X (Version None)
Quarter: 2011Q3

REPORT INFORMATION
  Report Type: 
  Country: None (occurrence: None)
  Receive Date: 20110919
  Receipt Date: 20110906
  Transmission Date: 20111222
  Serious: Yes (Disabling)
  Sender: FDA-Public Use
  Company Number: CA-ELI_LILLY_AND_COMPANY-CA201108004594

PATIENT
  Age: 65 Year
  Sex: Female
  Weight: 53 kg

DRUGS (16)
  1. ATIVAN [Concomitant]
     Dosage: UNK, EACH EVENING
  2. MULTI-VITAMINS [Concomitant]
  3. LEVOTHYROXINE SODIUM [Concomitant]
     Dosage: UNK, QD
  4. FORTEO [Suspect]
     Indication: OSTEOPOROSIS
     Dosage: 20 UG, QD
     Route: 058
     Dates: start: 20110421
  5. ASCORBIC ACID [Concomitant]
  6. STRONTIUM [Concomitant]
  7. ANTIOXIDANT                        /02147801/ [Concomitant]
  8. ZINC [Concomitant]
  9. SELENIUM [Concomitant]
  10. PROGESTIN INJ [Concomitant]
  11. LORAZEPAM [Concomitant]
  12. SYNTHROID [Concomitant]
  13. VITAMIN D [Concomitant]
  14. CALCIUM CARBONATE [Concomitant]
     Dosage: 1500 MG, QD
  15. VITAMIN E [Concomitant]
  16. VITAMIN B COMPLEX CAP [Concomitant]

REACTIONS (2)
  - MUSCLE STRAIN [None]
  - FEELING ABNORMAL [None]
